FAERS Safety Report 24677944 (Version 1)
Quarter: 2024Q4

REPORT INFORMATION
  Report Type: Report from Study
  Country: ZA (occurrence: ZA)
  Receive Date: 20241129
  Receipt Date: 20241129
  Transmission Date: 20250114
  Serious: Yes (Death, Other)
  Sender: ALEXION PHARMACEUTICALS
  Company Number: ZA-AstraZeneca-CH-00756741A

PATIENT
  Age: 64 Year

DRUGS (14)
  1. DAPAGLIFLOZIN [Suspect]
     Active Substance: DAPAGLIFLOZIN
     Indication: Diabetes mellitus
     Dosage: 5 MILLIGRAM
  2. DAPAGLIFLOZIN [Suspect]
     Active Substance: DAPAGLIFLOZIN
     Dosage: 5 MILLIGRAM
  3. DAPAGLIFLOZIN [Suspect]
     Active Substance: DAPAGLIFLOZIN
     Dosage: 5 MILLIGRAM
  4. DAPAGLIFLOZIN [Suspect]
     Active Substance: DAPAGLIFLOZIN
     Dosage: 5 MILLIGRAM
  5. PERDOTOR PLUS [Concomitant]
     Indication: Hypertension
  6. PERDOTOR PLUS [Concomitant]
  7. PERDOTOR PLUS [Concomitant]
  8. PERDOTOR PLUS [Concomitant]
  9. Pantocid [Concomitant]
     Indication: Ulcer
     Dosage: 40 MILLIGRAM
  10. Pantocid [Concomitant]
     Dosage: 40 MILLIGRAM
  11. ALFACALCIDOL [Concomitant]
     Active Substance: ALFACALCIDOL
     Indication: Osteoporosis
     Dosage: 1 MICROGRAM
  12. ALFACALCIDOL [Concomitant]
     Active Substance: ALFACALCIDOL
     Dosage: 1 MICROGRAM
  13. Synaleve [Concomitant]
     Indication: Pain
  14. Synaleve [Concomitant]

REACTIONS (1)
  - Death [Fatal]
